FAERS Safety Report 17080952 (Version 2)
Quarter: 2021Q4

REPORT INFORMATION
  Report Type: Spontaneous
  Country: US (occurrence: US)
  Receive Date: 20191127
  Receipt Date: 20211108
  Transmission Date: 20220303
  Serious: Yes (Other)
  Sender: FDA-Public Use
  Company Number: US-PFIZER INC-2019507451

PATIENT
  Age: 72 Year
  Sex: Female
  Weight: 82.55 kg

DRUGS (8)
  1. DOFETILIDE [Suspect]
     Active Substance: DOFETILIDE
     Indication: Atrial fibrillation
     Dosage: 250 UG, 2X/DAY (ONE IN THE AM AND ONE IN PM)
     Dates: start: 2020
  2. ATORVASTATIN [Concomitant]
     Active Substance: ATORVASTATIN
     Indication: Blood cholesterol
     Dosage: 20 MG, DAILY
  3. WARFARIN [Concomitant]
     Active Substance: WARFARIN
     Indication: Heart valve operation
     Dosage: 8 MG, 2X/WEEK (ON TUESDAYS AND THURSDAYS)
  4. AZELASTINE [Concomitant]
     Active Substance: AZELASTINE
     Dosage: UNK, 2X/DAY (NASAL SOLUTION, TWICE DAILY AS NEEDED)
  5. ALBUTEROL [Concomitant]
     Active Substance: ALBUTEROL
     Dosage: UNK UNK, AS NEEDED
  6. LORATADINE [Concomitant]
     Active Substance: LORATADINE
     Dosage: 10 MG, AS NEEDED
  7. METOPROLOL [Concomitant]
     Active Substance: METOPROLOL
     Indication: Hypertension
     Dosage: 25MG HALF TABLET PER DAY
  8. METOPROLOL [Concomitant]
     Active Substance: METOPROLOL
     Indication: Atrial fibrillation

REACTIONS (3)
  - Liver injury [Unknown]
  - Renal injury [Unknown]
  - Vitamin B12 decreased [Unknown]
